APPROVED DRUG PRODUCT: BACTROBAN
Active Ingredient: MUPIROCIN
Strength: 2% **Federal Register determination that product was not discontinued or withdrawn for safety or effectiveness reasons**
Dosage Form/Route: OINTMENT;TOPICAL
Application: N050591 | Product #001
Applicant: GLAXOSMITHKLINE
Approved: Dec 31, 1987 | RLD: Yes | RS: No | Type: DISCN